FAERS Safety Report 5164930-8 (Version None)
Quarter: 2006Q4

REPORT INFORMATION
  Report Type: 
  Country: None (occurrence: None)
  Receive Date: 20061205
  Receipt Date: 20041125
  Transmission Date: 20070319
  Serious: Yes (Life-Threatening, Hospitalization, Other)
  Sender: FDA-Public Use
  Company Number: US-ALLERGAN-200410652

PATIENT
  Age: 52 Year
  Sex: Male

DRUGS (1)
  1. BOTULINUM TOXIN TYPE A UNK [Suspect]
     Indication: SKIN WRINKLING
     Dosage: INJECTED INTO GLABELLAR AND CROWS FEET
     Route: 030

REACTIONS (5)
  - BOTULISM [None]
  - INCORRECT DOSE ADMINISTERED [None]
  - POOR QUALITY DRUG ADMINISTERED [None]
  - RESPIRATORY FAILURE [None]
  - THERAPEUTIC PRODUCT CONTAMINATION [None]
